FAERS Safety Report 24010436 (Version 5)
Quarter: 2024Q4

REPORT INFORMATION
  Report Type: Report from Study
  Country: CA (occurrence: CA)
  Receive Date: 20240625
  Receipt Date: 20241219
  Transmission Date: 20250115
  Serious: Yes (Other)
  Sender: TAKEDA
  Company Number: CA-TAKEDA-2024TUS040594

PATIENT
  Age: 79 Year
  Sex: Female

DRUGS (8)
  1. VEDOLIZUMAB [Suspect]
     Active Substance: VEDOLIZUMAB
     Indication: Colitis microscopic
     Dosage: 300 MILLIGRAM
  2. VEDOLIZUMAB [Suspect]
     Active Substance: VEDOLIZUMAB
     Dosage: 300 MILLIGRAM
  3. VEDOLIZUMAB [Suspect]
     Active Substance: VEDOLIZUMAB
     Dosage: 300 MILLIGRAM
  4. ATIVAN [Concomitant]
     Active Substance: LORAZEPAM
     Dosage: UNK
  5. MELATONIN [Concomitant]
     Active Substance: MELATONIN
     Dosage: UNK
  6. VITAMINS [Concomitant]
     Active Substance: VITAMINS
     Dosage: UNK
  7. CALCIUM\VITAMIN D [Concomitant]
     Active Substance: CALCIUM\VITAMIN D
     Dosage: UNK
  8. RISEDRONATE SODIUM [Concomitant]
     Active Substance: RISEDRONATE SODIUM
     Dosage: UNK

REACTIONS (18)
  - Cataract [Unknown]
  - Diarrhoea [Recovered/Resolved]
  - Frequent bowel movements [Not Recovered/Not Resolved]
  - Insomnia [Unknown]
  - Panic attack [Unknown]
  - Off label use [Unknown]
  - Abdominal pain upper [Unknown]
  - Drug effect less than expected [Unknown]
  - Dehydration [Unknown]
  - Mucous stools [Unknown]
  - Defaecation urgency [Unknown]
  - Vomiting [Unknown]
  - Dyspepsia [Unknown]
  - Gastroenteritis [Unknown]
  - Flatulence [Unknown]
  - Headache [Unknown]
  - Nausea [Not Recovered/Not Resolved]
  - Fatigue [Unknown]

NARRATIVE: CASE EVENT DATE: 20240425
